FAERS Safety Report 7901391-7 (Version None)
Quarter: 2011Q4

REPORT INFORMATION
  Report Type: 
  Country: None (occurrence: None)
  Receive Date: 20111108
  Receipt Date: 20111103
  Transmission Date: 20120403
  Serious: Yes (Other)
  Sender: FDA-Public Use
  Company Number: GB-ABBOTT-11P-167-0857548-00

PATIENT
  Age: 7 Year
  Sex: Female

DRUGS (2)
  1. EPILIM CHRONO (PREV.) [Concomitant]
     Indication: PRODUCT USED FOR UNKNOWN INDICATION
  2. VALPROIC ACID [Suspect]
     Indication: EPILEPSY
     Dates: start: 20110915

REACTIONS (4)
  - EPILEPSY [None]
  - MEDICATION RESIDUE [None]
  - CONVULSION [None]
  - DRUG INEFFECTIVE [None]
